FAERS Safety Report 21748121 (Version 1)
Quarter: 2022Q4

REPORT INFORMATION
  Report Type: Spontaneous
  Country: US (occurrence: US)
  Receive Date: 20221219
  Receipt Date: 20221219
  Transmission Date: 20230113
  Serious: Yes (Other)
  Sender: FDA-Public Use
  Company Number: US-PFIZER INC-PV202200123179

PATIENT
  Age: 73 Year
  Sex: Female
  Weight: 70.307 kg

DRUGS (6)
  1. XELJANZ [Suspect]
     Active Substance: TOFACITINIB CITRATE
     Indication: Crohn^s disease
     Dosage: 10 MG, 2X/DAY (20 MG FORM STRENGTH 10MG, 2/DAYS)
     Route: 048
  2. XELJANZ [Suspect]
     Active Substance: TOFACITINIB CITRATE
     Indication: Psoriasis
  3. HUMIRA [Suspect]
     Active Substance: ADALIMUMAB
     Indication: Crohn^s disease
     Dosage: UNK, WEEKLY (EVERY 1 WEEKS)
     Route: 058
  4. HUMIRA [Suspect]
     Active Substance: ADALIMUMAB
     Indication: Psoriasis
  5. MODERNA COVID-19 VACCINE [Suspect]
     Active Substance: ELASOMERAN
     Indication: COVID-19 immunisation
     Dosage: DOSE NUMBER UNKNOWN, SINGLE
     Route: 030
  6. STELARA [Suspect]
     Active Substance: USTEKINUMAB
     Indication: Psoriasis
     Dosage: UNK

REACTIONS (7)
  - Deafness [Unknown]
  - Upper limb fracture [Unknown]
  - Condition aggravated [Unknown]
  - Adverse food reaction [Unknown]
  - Fall [Unknown]
  - Arthritis enteropathic [Unknown]
  - Pain [Unknown]

NARRATIVE: CASE EVENT DATE: 20221009
